FAERS Safety Report 6062705-9 (Version None)
Quarter: 2009Q1

REPORT INFORMATION
  Report Type: 
  Country: None (occurrence: None)
  Receive Date: 20090203
  Receipt Date: 20090125
  Transmission Date: 20090719
  Serious: Yes (Hospitalization)
  Sender: FDA-Public Use
  Company Number: US-AMGEN-QUU330266

PATIENT
  Sex: Female

DRUGS (1)
  1. ENBREL [Suspect]
     Indication: RHEUMATOID ARTHRITIS
     Route: 058
     Dates: start: 19981201

REACTIONS (5)
  - KNEE OPERATION [None]
  - LIMB OPERATION [None]
  - PAIN [None]
  - SHOULDER ARTHROPLASTY [None]
  - SWELLING [None]
